FAERS Safety Report 21143975 (Version 1)
Quarter: 2022Q3

REPORT INFORMATION
  Report Type: Report from Study
  Country: DE (occurrence: DE)
  Receive Date: 20220728
  Receipt Date: 20220728
  Transmission Date: 20221026
  Serious: Yes (Hospitalization)
  Sender: FDA-Public Use
  Company Number: DE-MYLANLABS-2022M1081614

PATIENT
  Age: 73 Year
  Sex: Male

DRUGS (10)
  1. METHOTREXATE [Suspect]
     Active Substance: METHOTREXATE
     Indication: Product used for unknown indication
     Dosage: 17.5
     Route: 065
     Dates: start: 20190801
  2. METHOTREXATE [Suspect]
     Active Substance: METHOTREXATE
     Dosage: 15.0
     Route: 065
     Dates: start: 20191008
  3. METHOTREXATE [Suspect]
     Active Substance: METHOTREXATE
     Dosage: 15.0
     Route: 065
     Dates: start: 20200218
  4. METHOTREXATE [Suspect]
     Active Substance: METHOTREXATE
     Dosage: 7.5
     Route: 065
     Dates: start: 20200715
  5. METHOTREXATE [Suspect]
     Active Substance: METHOTREXATE
     Dosage: 15.0
     Route: 065
     Dates: start: 20201206
  6. METHOTREXATE [Suspect]
     Active Substance: METHOTREXATE
     Dosage: 15.0
     Route: 065
     Dates: start: 20210729
  7. METHOTREXATE [Suspect]
     Active Substance: METHOTREXATE
     Dosage: 15.0
     Route: 065
     Dates: start: 20220113
  8. RINVOQ [Suspect]
     Active Substance: UPADACITINIB
     Indication: Product used for unknown indication
     Dosage: 15 MILLIGRAM
     Route: 065
     Dates: start: 202107
  9. OLUMIANT [Suspect]
     Active Substance: BARICITINIB
     Indication: Product used for unknown indication
     Dosage: 4 MILLIGRAM
     Route: 065
     Dates: start: 201908, end: 202009
  10. OLUMIANT [Suspect]
     Active Substance: BARICITINIB
     Dosage: 2 MILLIGRAM
     Route: 065
     Dates: start: 201908, end: 202009

REACTIONS (1)
  - Atrial fibrillation [Unknown]

NARRATIVE: CASE EVENT DATE: 20210701
